FAERS Safety Report 4617735-8 (Version None)
Quarter: 2005Q1

REPORT INFORMATION
  Report Type: 
  Country: None (occurrence: None)
  Receive Date: 20050324
  Receipt Date: 20050310
  Transmission Date: 20050727
  Serious: Yes (Life-Threatening, Hospitalization)
  Sender: FDA-Public Use
  Company Number: DE-ROCHE-398368

PATIENT
  Age: 44 Year
  Sex: Female

DRUGS (10)
  1. VALIUM [Suspect]
     Indication: SEDATION
     Route: 065
  2. VALIUM [Suspect]
     Route: 065
     Dates: start: 20050225, end: 20050225
  3. DACLIZUMAB [Suspect]
     Route: 042
  4. MYCOPHENOLATE MOFETIL [Suspect]
     Route: 065
  5. TACROLIMUS [Suspect]
     Dosage: DOSE ADJUSTED TO REACH PREDEFINED TARGET LEVELS.
     Route: 048
     Dates: start: 20050222
  6. CORTICOSTEROIDS [Suspect]
     Route: 065
  7. ACETYLCYSTEINE [Concomitant]
     Dates: start: 20050222, end: 20050306
  8. NOREPINEPHRINE HCL [Concomitant]
     Dates: start: 20050217, end: 20050219
  9. ANTITHROMBIN III [Concomitant]
     Dates: start: 20050217, end: 20050219
  10. SULFAMETHOXAZOLE AND TRIMETHOPRIM [Concomitant]
     Dates: start: 20050218

REACTIONS (6)
  - DISTURBANCE IN ATTENTION [None]
  - OXYGEN SATURATION DECREASED [None]
  - PLEURAL EFFUSION [None]
  - POST PROCEDURAL COMPLICATION [None]
  - RESPIRATORY DEPRESSION [None]
  - SOMNOLENCE [None]
